FAERS Safety Report 16033166 (Version 2)
Quarter: 2019Q1

REPORT INFORMATION
  Report Type: Spontaneous
  Country: NL (occurrence: NL)
  Receive Date: 20190305
  Receipt Date: 20190327
  Transmission Date: 20190418
  Serious: Yes (Death, Life-Threatening, Hospitalization, Other)
  Sender: FDA-Public Use
  Company Number: NL-ACCORD-063255

PATIENT
  Age: 49 Year
  Sex: Male

DRUGS (4)
  1. DEFIBROTIDE [Suspect]
     Active Substance: DEFIBROTIDE (BOVINE)
     Indication: VENOOCCLUSIVE LIVER DISEASE
  2. PREDNISOLONE. [Concomitant]
     Active Substance: PREDNISOLONE
     Indication: PANCREAS TRANSPLANT
  3. TACROLIMUS. [Suspect]
     Active Substance: TACROLIMUS
     Indication: PANCREAS TRANSPLANT
  4. MYCOPHENOLIC ACID. [Concomitant]
     Active Substance: MYCOPHENOLIC ACID
     Indication: RENAL TRANSPLANT

REACTIONS (7)
  - Abdominal pain upper [Unknown]
  - Ascites [Unknown]
  - Venoocclusive liver disease [Fatal]
  - Gastrointestinal haemorrhage [Fatal]
  - Mental status changes [Fatal]
  - Hyperbilirubinaemia [Unknown]
  - Jaundice [Unknown]
